FAERS Safety Report 8476842-2 (Version None)
Quarter: 2012Q2

REPORT INFORMATION
  Report Type: 
  Country: None (occurrence: None)
  Receive Date: 20120629
  Receipt Date: 20120622
  Transmission Date: 20120825
  Serious: Yes (Hospitalization, Other)
  Sender: FDA-Public Use
  Company Number: US-BIOGENIDEC-2010BI016917

PATIENT
  Age: 48 Year
  Sex: Female
  Weight: 51 kg

DRUGS (7)
  1. TYSABRI [Suspect]
     Indication: MULTIPLE SCLEROSIS
     Route: 042
     Dates: start: 20100416, end: 20100430
  2. TYSABRI [Suspect]
     Route: 042
     Dates: start: 20111104, end: 20111202
  3. LEXAPRO [Concomitant]
  4. REQUIP [Concomitant]
  5. NEXIUM [Concomitant]
  6. NEURONTIN [Concomitant]
  7. TRAZODONE HCL [Concomitant]

REACTIONS (2)
  - LYMPHOCYTOSIS [None]
  - LEUKAEMIA [None]
